FAERS Safety Report 24165795 (Version 1)
Quarter: 2024Q3

REPORT INFORMATION
  Report Type: Spontaneous
  Country: IN (occurrence: IN)
  Receive Date: 20240802
  Receipt Date: 20240802
  Transmission Date: 20241017
  Serious: Yes (Hospitalization, Other)
  Sender: GLENMARK
  Company Number: IN-MLMSERVICE-20240712-PI130655-00217-1

PATIENT

DRUGS (1)
  1. METFORMIN HYDROCHLORIDE [Suspect]
     Active Substance: METFORMIN HYDROCHLORIDE
     Indication: Diabetes mellitus
     Dosage: 1000 MILLIGRAM, OD
     Route: 065

REACTIONS (3)
  - Toxic encephalopathy [Unknown]
  - Lactic acidosis [Recovering/Resolving]
  - Toxicity to various agents [Unknown]
